FAERS Safety Report 20810186 (Version 1)
Quarter: 2022Q2

REPORT INFORMATION
  Report Type: Spontaneous
  Country: US (occurrence: None)
  Receive Date: 20220510
  Receipt Date: 20220510
  Transmission Date: 20220721
  Serious: Yes (Hospitalization)
  Sender: FDA-Public Use
  Company Number: None

PATIENT
  Sex: Female

DRUGS (6)
  1. IMATINIB MESYLATE [Suspect]
     Active Substance: IMATINIB MESYLATE
     Indication: Chronic myeloid leukaemia
     Dosage: FREQUENCY : DAILY;?
     Route: 048
     Dates: start: 20191031
  2. ATORVASTATIN [Concomitant]
     Active Substance: ATORVASTATIN
  3. CLOTRIM/BETA CRE [Concomitant]
  4. CYCLOBENZAPRINE HYDROCHLORIDE [Concomitant]
     Active Substance: CYCLOBENZAPRINE HYDROCHLORIDE
  5. IMATINIB MESYLATE [Concomitant]
     Active Substance: IMATINIB MESYLATE
  6. METHYLPRED TAB [Concomitant]

REACTIONS (1)
  - Therapy interrupted [None]
